FAERS Safety Report 17512578 (Version 1)
Quarter: 2020Q1

REPORT INFORMATION
  Report Type: Spontaneous
  Country: US (occurrence: US)
  Receive Date: 20200308
  Receipt Date: 20200308
  Transmission Date: 20200409
  Serious: Yes (Other)
  Sender: FDA-Public Use
  Company Number: US-AUROBINDO-AUR-APL-2020-010954

PATIENT
  Age: 65 Year
  Sex: Male

DRUGS (4)
  1. SODIUM BICARBONATE. [Suspect]
     Active Substance: SODIUM BICARBONATE
     Indication: VENTRICULAR TACHYCARDIA
     Dosage: UNK, 1 AMPOULE
     Route: 065
  2. EPINEPHRINE. [Suspect]
     Active Substance: EPINEPHRINE
     Indication: VENTRICULAR TACHYCARDIA
     Dosage: 1 MILLIGRAM
     Route: 065
  3. MAGNESIUM [Suspect]
     Active Substance: MAGNESIUM
     Indication: VENTRICULAR TACHYCARDIA
     Dosage: 2 GRAM
     Route: 065
  4. AMIODARONE HYDROCHLORIDE. [Suspect]
     Active Substance: AMIODARONE HYDROCHLORIDE
     Indication: VENTRICULAR TACHYCARDIA
     Dosage: UNK
     Route: 065

REACTIONS (2)
  - Drug ineffective [Unknown]
  - Ventricular fibrillation [Unknown]
